FAERS Safety Report 6539570-6 (Version None)
Quarter: 2010Q1

REPORT INFORMATION
  Report Type: 
  Country: None (occurrence: None)
  Receive Date: 20100115
  Receipt Date: 20100112
  Transmission Date: 20100710
  Serious: Yes (Hospitalization)
  Sender: FDA-Public Use
  Company Number: B0626102A

PATIENT
  Sex: Male

DRUGS (6)
  1. AUGMENTIN '125' [Suspect]
     Indication: SINUSITIS
     Dosage: 2G PER DAY
     Route: 048
     Dates: start: 20090312, end: 20090314
  2. EFFEXOR [Suspect]
     Indication: DEPRESSION
     Dosage: 50MG PER DAY
     Route: 048
     Dates: start: 20090215, end: 20090315
  3. ACEDIUR [Concomitant]
     Indication: HYPERTENSION
  4. GLICONORM [Concomitant]
     Indication: DIABETES MELLITUS
  5. SEREUPIN [Concomitant]
     Indication: DEPRESSION
  6. TAVOR [Concomitant]

REACTIONS (4)
  - CONFUSIONAL STATE [None]
  - HEADACHE [None]
  - HYPERTENSION [None]
  - VERTIGO [None]
